FAERS Safety Report 16574042 (Version 1)
Quarter: 2019Q3

REPORT INFORMATION
  Report Type: Spontaneous
  Country: US (occurrence: US)
  Receive Date: 20190715
  Receipt Date: 20190715
  Transmission Date: 20191004
  Serious: No
  Sender: FDA-Public Use
  Company Number: US-MYLANLABS-2019M1060789

PATIENT
  Sex: Female
  Weight: 68 kg

DRUGS (1)
  1. XULANE [Suspect]
     Active Substance: ETHINYL ESTRADIOL\NORELGESTROMIN
     Indication: ENDOMETRIOSIS
     Dosage: ONE PATCH A WEEK FOR 3 WEEKS OF THE MONTH
     Route: 062
     Dates: start: 20150630

REACTIONS (2)
  - Product adhesion issue [Unknown]
  - Product use in unapproved indication [Unknown]
